FAERS Safety Report 8439041-6 (Version None)
Quarter: 2012Q2

REPORT INFORMATION
  Report Type: 
  Country: None (occurrence: None)
  Receive Date: 20120615
  Receipt Date: 20120604
  Transmission Date: 20120825
  Serious: Yes (Hospitalization)
  Sender: FDA-Public Use
  Company Number: US-ELI_LILLY_AND_COMPANY-US201205002041

PATIENT
  Age: 85 Year
  Sex: Female

DRUGS (3)
  1. ZYPREXA [Suspect]
     Dosage: 20 MG, UNK
  2. ZYPREXA [Suspect]
     Dosage: 10 MG, UNK
     Dates: start: 20100101, end: 20110901
  3. INSULIN [Concomitant]

REACTIONS (2)
  - PSYCHOTIC DISORDER [None]
  - DYSPNOEA [None]
